FAERS Safety Report 12395821 (Version 1)
Quarter: 2016Q2

REPORT INFORMATION
  Report Type: Not Available
  Country: US (occurrence: US)
  Receive Date: 20160523
  Receipt Date: 20160523
  Transmission Date: 20160815
  Serious: No
  Sender: FDA-Public Use
  Company Number: US-ANIPHARMA-2016-US-003386

PATIENT
  Age: 38 Year
  Sex: Female

DRUGS (1)
  1. LITHOBID [Suspect]
     Active Substance: LITHIUM CARBONATE
     Dosage: UNKNOWN
     Route: 065

REACTIONS (1)
  - Psychotic disorder [Unknown]
